FAERS Safety Report 8195429-2 (Version None)
Quarter: 2012Q1

REPORT INFORMATION
  Report Type: 
  Country: None (occurrence: None)
  Receive Date: 20120308
  Receipt Date: 20120301
  Transmission Date: 20120608
  Serious: Yes (Life-Threatening)
  Sender: FDA-Public Use
  Company Number: PHHY2012NO017952

PATIENT
  Sex: Male

DRUGS (3)
  1. RITALIN [Suspect]
     Dates: start: 20120201
  2. DIAZEPAM [Suspect]
     Dosage: UNK
     Dates: start: 20120201
  3. ASPIRIN [Suspect]
     Dosage: UNK
     Dates: start: 20120201

REACTIONS (1)
  - AORTIC THROMBOSIS [None]
